FAERS Safety Report 8364217-6 (Version None)
Quarter: 2012Q2

REPORT INFORMATION
  Report Type: 
  Country: None (occurrence: None)
  Receive Date: 20120516
  Receipt Date: 20120511
  Transmission Date: 20120825
  Serious: Yes (Other)
  Sender: FDA-Public Use
  Company Number: PHHY2012BR040776

PATIENT
  Sex: Male

DRUGS (6)
  1. ONBREZ [Suspect]
     Indication: RESPIRATORY DISORDER
  2. ONBREZ [Suspect]
     Indication: EMPHYSEMA
  3. MONOCARDIL [Concomitant]
     Indication: BLOOD PRESSURE INCREASED
     Dosage: 20 MG, QD
  4. TENTALIVE [Concomitant]
     Indication: BLOOD PRESSURE INCREASED
     Dosage: 10 MG, QD
  5. CAPTOPRIL [Concomitant]
     Indication: BLOOD PRESSURE INCREASED
     Route: 060
  6. ASPIRIN [Concomitant]
     Indication: BLOOD DISORDER

REACTIONS (2)
  - CEREBROVASCULAR ACCIDENT [None]
  - DYSURIA [None]
